FAERS Safety Report 19168796 (Version 2)
Quarter: 2021Q4

REPORT INFORMATION
  Report Type: Spontaneous
  Country: GB (occurrence: GB)
  Receive Date: 20210422
  Receipt Date: 20211116
  Transmission Date: 20220303
  Serious: Yes (Life-Threatening)
  Sender: FDA-Public Use
  Company Number: None

PATIENT
  Age: 74 Year
  Sex: Male
  Weight: 90 kg

DRUGS (4)
  1. ARIPIPRAZOLE [Suspect]
     Active Substance: ARIPIPRAZOLE
     Indication: Ill-defined disorder
     Dosage: UNK (2.5 - 5)
     Route: 048
     Dates: start: 20210409
  2. ARIPIPRAZOLE [Suspect]
     Active Substance: ARIPIPRAZOLE
     Dosage: UNK (2.5 - 5 MG)
     Route: 048
     Dates: start: 20210409
  3. ACETAMINOPHEN [Concomitant]
     Active Substance: ACETAMINOPHEN
     Indication: Ill-defined disorder
     Dosage: UNK
  4. ZOLPIDEM [Concomitant]
     Active Substance: ZOLPIDEM TARTRATE
     Indication: Ill-defined disorder
     Dosage: UNK

REACTIONS (14)
  - Mood swings [Not Recovered/Not Resolved]
  - Muscle spasms [Unknown]
  - Eye pain [Unknown]
  - Palpitations [Unknown]
  - Eructation [Unknown]
  - Fear [Unknown]
  - Balance disorder [Unknown]
  - Vision blurred [Unknown]
  - Musculoskeletal stiffness [Unknown]
  - Suicidal ideation [Not Recovered/Not Resolved]
  - Agitation [Unknown]
  - Headache [Unknown]
  - Abdominal discomfort [Unknown]
  - Photosensitivity reaction [Unknown]

NARRATIVE: CASE EVENT DATE: 20210410
